FAERS Safety Report 6294490-X (Version None)
Quarter: 2009Q3

REPORT INFORMATION
  Report Type: 
  Country: None (occurrence: None)
  Receive Date: 20090803
  Receipt Date: 20090729
  Transmission Date: 20100115
  Serious: Yes (Life-Threatening)
  Sender: FDA-Public Use
  Company Number: FR-ASTRAZENECA-2009SE06200

PATIENT
  Age: 25732 Day
  Sex: Male

DRUGS (6)
  1. ZESTORETIC [Suspect]
     Route: 048
  2. DIANTALVIC [Suspect]
     Route: 048
     Dates: end: 20090319
  3. INSULIN [Suspect]
     Route: 058
     Dates: end: 20090319
  4. CARDENSIEL [Suspect]
     Route: 048
  5. ASPEGIC 1000 [Suspect]
  6. LEVOTHYROX [Suspect]
     Route: 048

REACTIONS (1)
  - HYPOGLYCAEMIC COMA [None]
